FAERS Safety Report 26050776 (Version 1)
Quarter: 2025Q4

REPORT INFORMATION
  Report Type: Spontaneous
  Country: US (occurrence: US)
  Receive Date: 20251116
  Receipt Date: 20251116
  Transmission Date: 20260118
  Serious: No
  Sender: BAUSCH AND LOMB
  Company Number: US-BAUSCHBL-2025BNL031642

PATIENT
  Age: 60 Year
  Sex: Male

DRUGS (1)
  1. DORZOLAMIDE HYDROCHLORIDE\TIMOLOL MALEATE [Suspect]
     Active Substance: DORZOLAMIDE HYDROCHLORIDE\TIMOLOL MALEATE
     Indication: Glaucoma
     Dosage: 1 DROP INTO EACH EYE TWICE DAILY IN THE MORNING AND AT NIGHT,
     Route: 047

REACTIONS (3)
  - Eye irritation [Unknown]
  - Product delivery mechanism issue [Unknown]
  - Product container issue [Unknown]
